FAERS Safety Report 6829583-9 (Version None)
Quarter: 2010Q3

REPORT INFORMATION
  Report Type: 
  Country: None (occurrence: None)
  Receive Date: 20100709
  Receipt Date: 20070421
  Transmission Date: 20110219
  Serious: Yes (Other)
  Sender: FDA-Public Use
  Company Number: US-PFIZER INC-2007018033

PATIENT
  Sex: Female

DRUGS (5)
  1. CHANTIX [Suspect]
     Indication: TOBACCO ABUSE
     Dates: end: 20070220
  2. PAXIL [Concomitant]
  3. LOVASTATIN [Concomitant]
  4. XANAX [Concomitant]
  5. FLONASE [Concomitant]

REACTIONS (3)
  - DRUG HYPERSENSITIVITY [None]
  - RASH [None]
  - URTICARIA [None]
